FAERS Safety Report 21490649 (Version 1)
Quarter: 2022Q4

REPORT INFORMATION
  Report Type: Spontaneous
  Country: US (occurrence: US)
  Receive Date: 20221021
  Receipt Date: 20221021
  Transmission Date: 20230112
  Serious: No
  Sender: FDA-Public Use
  Company Number: US-CIPLA LTD.-2022US04903

PATIENT
  Sex: Female

DRUGS (3)
  1. GABAPENTIN [Suspect]
     Active Substance: GABAPENTIN
     Indication: Pain of skin
     Dosage: 300 MILLIGRAM, QD, 300 MG ONE PILL LAST NIGHT
     Route: 048
     Dates: start: 20220807
  2. GABAPENTIN [Suspect]
     Active Substance: GABAPENTIN
     Indication: Herpes virus infection
  3. REMICADE [Concomitant]
     Active Substance: INFLIXIMAB
     Indication: Hidradenitis
     Dosage: UNK, ONCE EVERY 4 WEEKS
     Route: 042

REACTIONS (1)
  - Dizziness [Recovering/Resolving]

NARRATIVE: CASE EVENT DATE: 20220808
